FAERS Safety Report 13525681 (Version 2)
Quarter: 2017Q2

REPORT INFORMATION
  Report Type: Spontaneous
  Country: CA (occurrence: CA)
  Receive Date: 20170508
  Receipt Date: 20170623
  Transmission Date: 20170830
  Serious: Yes (Life-Threatening, Hospitalization, Other)
  Sender: FDA-Public Use
  Company Number: CA-AMGEN-CANSP2017067059

PATIENT
  Age: 82 Year
  Sex: Female
  Weight: 45.6 kg

DRUGS (20)
  1. PANTOLOC [Concomitant]
     Active Substance: PANTOPRAZOLE SODIUM
     Dosage: 40 MG, UNK
     Route: 048
     Dates: start: 20151202
  2. CALCIUM CARBONATE. [Concomitant]
     Active Substance: CALCIUM CARBONATE
     Dosage: 1250 MG, UNK
     Route: 048
  3. L-THYROXINE [Concomitant]
     Active Substance: LEVOTHYROXINE
     Dosage: 0.088 MG, UNK
     Route: 048
     Dates: start: 20151026
  4. DONEPEZIL. [Concomitant]
     Active Substance: DONEPEZIL
  5. ARICEPT [Concomitant]
     Active Substance: DONEPEZIL HYDROCHLORIDE
     Dosage: 5 MG, UNK
  6. LANTUS [Concomitant]
     Active Substance: INSULIN GLARGINE
     Dosage: 5 UNIT, UNK
     Route: 058
     Dates: start: 20120731
  7. FERROUS SULFATE. [Concomitant]
     Active Substance: FERROUS SULFATE
     Dosage: 300 MG, UNK
     Route: 048
  8. HUMALOG [Concomitant]
     Active Substance: INSULIN LISPRO
     Dosage: UNK
  9. ASPIRIN (E.C.) [Concomitant]
     Active Substance: ASPIRIN
     Dosage: 81 MG, UNK
     Route: 048
     Dates: start: 20140717
  10. JANUVIA [Concomitant]
     Active Substance: SITAGLIPTIN PHOSPHATE
     Dosage: 50 MG, UNK
     Route: 048
  11. PROBIOTIC [Concomitant]
     Active Substance: PROBIOTICS NOS
     Dosage: 1 DF, UNK
  12. TYLENOL [Concomitant]
     Active Substance: ACETAMINOPHEN
     Dosage: UNK UNK, AS NECESSARY
  13. CALCIUM [Concomitant]
     Active Substance: CALCIUM
     Dosage: 1250 MG, UNK
     Route: 048
     Dates: start: 20170529
  14. ACETAMINOPHEN. [Concomitant]
     Active Substance: ACETAMINOPHEN
     Dosage: 325 MG, UNK
     Route: 048
  15. ATENOLOL. [Concomitant]
     Active Substance: ATENOLOL
     Dosage: 50 MG, UNK
     Route: 048
     Dates: start: 20130815
  16. VITAMIN D2 [Concomitant]
     Active Substance: ERGOCALCIFEROL
     Dosage: 1000 UNIT, UNK
     Route: 048
  17. LOVASTATIN. [Concomitant]
     Active Substance: LOVASTATIN
     Dosage: 20 MG, QD
     Route: 048
  18. METFORMIN [Concomitant]
     Active Substance: METFORMIN HYDROCHLORIDE
     Dosage: 250 MG, UNK
     Route: 048
  19. PROLIA [Suspect]
     Active Substance: DENOSUMAB
     Indication: OSTEOPOROSIS POSTMENOPAUSAL
     Dosage: 60 MG/ML, Q6MO
     Route: 058
     Dates: start: 20170420, end: 20170420
  20. LOSARTAN. [Concomitant]
     Active Substance: LOSARTAN

REACTIONS (20)
  - Dyskinesia [Unknown]
  - Blood gases abnormal [Unknown]
  - Condition aggravated [Not Recovered/Not Resolved]
  - Dyspnoea [Unknown]
  - Decreased appetite [Unknown]
  - Pain in extremity [Unknown]
  - Seizure [Recovered/Resolved]
  - Urinary tract infection [Unknown]
  - Myoclonus [Recovered/Resolved]
  - Haemoglobin decreased [Recovering/Resolving]
  - Pneumonia [Unknown]
  - Urinary retention [Unknown]
  - Escherichia infection [Unknown]
  - Back pain [Unknown]
  - Renal impairment [Recovered/Resolved]
  - Pulmonary oedema [Unknown]
  - Sedation [Unknown]
  - Muscle spasms [Unknown]
  - Blood urea increased [Unknown]
  - Anaemia [Unknown]

NARRATIVE: CASE EVENT DATE: 2017
